FAERS Safety Report 8314898-8 (Version None)
Quarter: 2012Q2

REPORT INFORMATION
  Report Type: 
  Country: None (occurrence: None)
  Receive Date: 20120426
  Receipt Date: 20120420
  Transmission Date: 20120825
  Serious: Yes (Other)
  Sender: FDA-Public Use
  Company Number: AU-JNJFOC-20120301206

PATIENT
  Sex: Male

DRUGS (3)
  1. STELARA [Suspect]
     Route: 058
     Dates: start: 20111121
  2. STELARA [Suspect]
     Route: 058
     Dates: start: 20120226
  3. STELARA [Suspect]
     Indication: PSORIASIS
     Route: 058
     Dates: start: 20110726

REACTIONS (4)
  - INAPPROPRIATE SCHEDULE OF DRUG ADMINISTRATION [None]
  - LOWER RESPIRATORY TRACT INFECTION [None]
  - TONSILLITIS [None]
  - PSORIASIS [None]
